FAERS Safety Report 23561253 (Version 1)
Quarter: 2024Q1

REPORT INFORMATION
  Report Type: Spontaneous
  Country: IT (occurrence: IT)
  Receive Date: 20240224
  Receipt Date: 20240224
  Transmission Date: 20240409
  Serious: Yes (Hospitalization)
  Sender: FDA-Public Use
  Company Number: IT-JUVISE-2023008925

PATIENT
  Age: 54 Year
  Sex: Female

DRUGS (4)
  1. PACLITAXEL [Suspect]
     Active Substance: PACLITAXEL
     Indication: Chemotherapy
     Dosage: FOUR CYCLES AT THE DOSE OF 80/300 MG/M2
  2. DOXORUBICIN [Suspect]
     Active Substance: DOXORUBICIN
     Indication: Adjuvant therapy
     Dosage: 60 MG/M2 FOUR CYCLES EVERY THREE WEEKS
  3. CYCLOPHOSPHAMIDE [Suspect]
     Active Substance: CYCLOPHOSPHAMIDE
     Indication: Adjuvant therapy
     Dosage: 600 MG/M2  FOUR CYCLES EVERY THREE WEEKS
  4. ARIMIDEX [Suspect]
     Active Substance: ANASTROZOLE
     Indication: Chemotherapy
     Dosage: IN A SINGLE DAILY DOSE

REACTIONS (6)
  - Fatigue [Recovered/Resolved]
  - Insomnia [Unknown]
  - Intentional product use issue [Unknown]
  - Asthenia [Unknown]
  - Pain [Recovered/Resolved]
  - Muscle spasms [Unknown]
